FAERS Safety Report 6404921-X (Version None)
Quarter: 2009Q4

REPORT INFORMATION
  Report Type: 
  Country: None (occurrence: None)
  Receive Date: 20091019
  Receipt Date: 20091013
  Transmission Date: 20100525
  Serious: Yes (Other)
  Sender: FDA-Public Use
  Company Number: BR-PFIZER INC-2009193378

PATIENT
  Age: 79 Year

DRUGS (2)
  1. LIPITOR [Suspect]
     Indication: BLOOD CHOLESTEROL
     Dosage: 10 MG, 1X/DAY
     Dates: start: 20081102, end: 20090223
  2. ATENOL [Concomitant]
     Indication: HYPERTENSION
     Dosage: UNK
     Dates: start: 20070401

REACTIONS (1)
  - FOREIGN BODY [None]
